FAERS Safety Report 6059262-X (Version None)
Quarter: 2009Q1

REPORT INFORMATION
  Report Type: 
  Country: None (occurrence: None)
  Receive Date: 20090130
  Receipt Date: 20090115
  Transmission Date: 20090719
  Serious: Yes (Other)
  Sender: FDA-Public Use
  Company Number: US-ASTRAZENECA-2009UW01348

PATIENT
  Age: 639 Month
  Sex: Female

DRUGS (1)
  1. CRESTOR [Suspect]
     Dosage: ON CRESTOR FOR YEARS
     Route: 048

REACTIONS (4)
  - BACK INJURY [None]
  - FALL [None]
  - FOOT FRACTURE [None]
  - SINUSITIS [None]
